FAERS Safety Report 6666066-3 (Version None)
Quarter: 2010Q2

REPORT INFORMATION
  Report Type: 
  Country: None (occurrence: None)
  Receive Date: 20100402
  Receipt Date: 20100322
  Transmission Date: 20101027
  Serious: Yes (Hospitalization)
  Sender: FDA-Public Use
  Company Number: US-BRISTOL-MYERS SQUIBB COMPANY-15042468

PATIENT
  Age: 61 Year
  Sex: Male
  Weight: 80 kg

DRUGS (14)
  1. CETUXIMAB [Suspect]
     Indication: BLADDER CANCER
     Dosage: CHIMERIC ANTI-EGFR MAB
     Route: 042
     Dates: start: 20091007, end: 20100303
  2. CISPLATIN [Suspect]
     Indication: BLADDER CANCER
     Route: 065
     Dates: start: 20091007, end: 20100127
  3. GEMCITABINE HCL [Suspect]
     Indication: BLADDER CANCER
     Route: 065
     Dates: start: 20091007, end: 20100203
  4. LORAZEPAM [Concomitant]
     Route: 065
  5. COUMADIN [Concomitant]
     Route: 065
  6. LORTAB [Concomitant]
     Route: 065
  7. METOPROLOL TARTRATE [Concomitant]
     Route: 065
  8. AMLODIPINE [Concomitant]
     Route: 065
  9. SIMVASTATIN [Concomitant]
     Route: 065
  10. AMBIEN [Concomitant]
     Route: 065
  11. NEUPOGEN [Concomitant]
     Route: 065
  12. OMEPRAZOLE [Concomitant]
     Route: 065
  13. GABAPENTIN [Concomitant]
     Route: 065
  14. OXYCODONE [Concomitant]
     Route: 065

REACTIONS (1)
  - ARTERIAL OCCLUSIVE DISEASE [None]
